FAERS Safety Report 16321111 (Version 1)
Quarter: 2019Q2

REPORT INFORMATION
  Report Type: Report from Study
  Country: US (occurrence: US)
  Receive Date: 20190516
  Receipt Date: 20190516
  Transmission Date: 20190711
  Serious: Yes (Hospitalization, Other)
  Sender: FDA-Public Use
  Company Number: US-CELGENEUS-USA-20190504024

PATIENT
  Age: 71 Year
  Sex: Male
  Weight: 63.11 kg

DRUGS (2)
  1. NIVOLUMAB [Suspect]
     Active Substance: NIVOLUMAB
     Indication: OROPHARYNGEAL CANCER
     Dosage: 360 MILLIGRAM
     Route: 041
     Dates: start: 20181128, end: 20190123
  2. ABRAXANE [Suspect]
     Active Substance: PACLITAXEL
     Indication: OROPHARYNGEAL CANCER
     Dosage: 171 MILLIGRAM
     Route: 041
     Dates: start: 20181128, end: 20190123

REACTIONS (7)
  - Muscular weakness [Unknown]
  - Decreased appetite [Unknown]
  - Fall [Unknown]
  - Head injury [Unknown]
  - Cognitive disorder [Unknown]
  - Device issue [Unknown]
  - Vomiting [Unknown]

NARRATIVE: CASE EVENT DATE: 20190506
